FAERS Safety Report 7266382-0 (Version None)
Quarter: 2011Q1

REPORT INFORMATION
  Report Type: 
  Country: None (occurrence: None)
  Receive Date: 20110131
  Receipt Date: 20110119
  Transmission Date: 20110831
  Serious: Yes (Hospitalization)
  Sender: FDA-Public Use
  Company Number: JP-AMGEN-JPNCT2010006698

PATIENT
  Age: 71 Year
  Sex: Male
  Weight: 57 kg

DRUGS (13)
  1. FLUOROURACIL [Concomitant]
     Indication: COLORECTAL CANCER
     Route: 040
     Dates: start: 20101104
  2. CALCIUM LEVOFOLINATE [Concomitant]
     Indication: COLORECTAL CANCER
     Route: 041
     Dates: start: 20101104
  3. TAKEPRON OD TABLETS 30 [Concomitant]
     Route: 048
     Dates: start: 20101004
  4. CORTICOSTEROIDS [Concomitant]
     Indication: PROPHYLAXIS
     Dosage: UNK
     Route: 065
  5. MUCOSTA [Concomitant]
     Indication: GASTRIC ULCER
     Route: 048
     Dates: start: 20101004
  6. FERO-GRADUMET [Concomitant]
     Indication: ANAEMIA
     Route: 048
     Dates: start: 20101020
  7. CODEINE SULFATE [Concomitant]
     Indication: PAIN
     Route: 048
     Dates: start: 20101018, end: 20101108
  8. ANTIHISTAMINES [Concomitant]
     Indication: PROPHYLAXIS
     Dosage: UNK
     Route: 065
  9. OXALIPLATIN [Concomitant]
     Indication: COLORECTAL CANCER
     Route: 041
     Dates: start: 20101104
  10. FLUOROURACIL [Concomitant]
     Route: 041
     Dates: start: 20101104
  11. TAKEPRON OD TABLETS 30 [Concomitant]
     Indication: GASTRIC ULCER
     Dosage: 30 MG, QD
     Route: 048
     Dates: start: 20101004
  12. PANITUMUMAB [Suspect]
     Indication: COLORECTAL CANCER
     Dosage: 6 MG/KG, Q2WK
     Route: 041
     Dates: start: 20101104
  13. MUCOSOLVAN [Concomitant]
     Indication: SPUTUM RETENTION
     Route: 048
     Dates: start: 20101015, end: 20101109

REACTIONS (2)
  - CEREBRAL INFARCTION [None]
  - PYELONEPHRITIS [None]
